FAERS Safety Report 8174651-5 (Version None)
Quarter: 2012Q1

REPORT INFORMATION
  Report Type: 
  Country: None (occurrence: None)
  Receive Date: 20120229
  Receipt Date: 20120220
  Transmission Date: 20120608
  Serious: Yes (Hospitalization)
  Sender: FDA-Public Use
  Company Number: FI-ELI_LILLY_AND_COMPANY-FI201110008159

PATIENT
  Sex: Female

DRUGS (5)
  1. ANTI-ASTHMATICS [Concomitant]
     Indication: ASTHMA
     Route: 055
  2. CALCIUM D [Concomitant]
     Indication: MINERAL SUPPLEMENTATION
  3. FORTEO [Suspect]
     Dosage: 20 UG, QD
     Route: 058
     Dates: start: 20110407, end: 20111212
  4. WARFARIN SODIUM [Concomitant]
     Indication: ANTICOAGULANT THERAPY
  5. ACETAMINOPHEN [Concomitant]
     Indication: PAIN
     Dosage: 2 G, QD

REACTIONS (6)
  - PNEUMONIA [None]
  - PAIN IN EXTREMITY [None]
  - MUSCULOSKELETAL STIFFNESS [None]
  - BRONCHITIS [None]
  - ATRIAL FIBRILLATION [None]
  - CHONDROCALCINOSIS PYROPHOSPHATE [None]
